FAERS Safety Report 23670617 (Version 1)
Quarter: 2024Q1

REPORT INFORMATION
  Report Type: Spontaneous
  Country: US (occurrence: US)
  Receive Date: 20240326
  Receipt Date: 20240326
  Transmission Date: 20240410
  Serious: No
  Sender: FDA-Public Use
  Company Number: US-TEVA-VS-3141150

PATIENT
  Sex: Female

DRUGS (1)
  1. AJOVY [Suspect]
     Active Substance: FREMANEZUMAB-VFRM
     Dosage: AUTOINJECTOR, STRENGTH: 225 MG / 1.5 ML
     Route: 065

REACTIONS (3)
  - Skin haemorrhage [Unknown]
  - Accidental exposure to product [Unknown]
  - Needle issue [Unknown]
